FAERS Safety Report 24633518 (Version 4)
Quarter: 2025Q1

REPORT INFORMATION
  Report Type: Spontaneous
  Country: US (occurrence: US)
  Receive Date: 20241118
  Receipt Date: 20250113
  Transmission Date: 20250409
  Serious: Yes (Other)
  Sender: SANOFI AVENTIS
  Company Number: US-SA-2024SA331649

PATIENT
  Age: 41 Year
  Sex: Female

DRUGS (5)
  1. DUPIXENT [Suspect]
     Active Substance: DUPILUMAB
     Indication: Nasal polyps
     Dosage: 300 MG, QOW
     Route: 058
     Dates: start: 20240801
  2. DUPIXENT [Suspect]
     Active Substance: DUPILUMAB
     Indication: Chronic sinusitis
  3. AZELASTINE [Concomitant]
     Active Substance: AZELASTINE
  4. WIXELA INHUB [Concomitant]
     Active Substance: FLUTICASONE PROPIONATE\SALMETEROL XINAFOATE
  5. BUDESONIDE [Concomitant]
     Active Substance: BUDESONIDE

REACTIONS (13)
  - NSAID exacerbated respiratory disease [Unknown]
  - Nasal congestion [Unknown]
  - Asthma [Unknown]
  - Post procedural infection [Unknown]
  - Blood iron decreased [Unknown]
  - Dyspnoea [Unknown]
  - Fatigue [Unknown]
  - Nasopharyngitis [Unknown]
  - Dry eye [Not Recovered/Not Resolved]
  - Injection site pain [Unknown]
  - Condition aggravated [Unknown]
  - Nasal polypectomy [Unknown]
  - Product use in unapproved indication [Unknown]

NARRATIVE: CASE EVENT DATE: 20240101
